FAERS Safety Report 24357558 (Version 1)
Quarter: 2024Q3

REPORT INFORMATION
  Report Type: Spontaneous
  Country: US (occurrence: US)
  Receive Date: 20240924
  Receipt Date: 20240924
  Transmission Date: 20241016
  Serious: Yes (Other)
  Sender: PFIZER
  Company Number: US-PFIZER INC-202400261092

PATIENT
  Age: 62 Year
  Sex: Female

DRUGS (1)
  1. IBRANCE [Suspect]
     Active Substance: PALBOCICLIB
     Dosage: 100MG TABLETS, 1 TABLET D 1-21 Q 28 DAYS
     Route: 048
     Dates: start: 202309

REACTIONS (2)
  - Second primary malignancy [Unknown]
  - Colon cancer [Unknown]
